FAERS Safety Report 23866325 (Version 3)
Quarter: 2024Q2

REPORT INFORMATION
  Report Type: Report from Study
  Country: US (occurrence: US)
  Receive Date: 20240517
  Receipt Date: 20240612
  Transmission Date: 20240715
  Serious: Yes (Death, Congenital Anomaly, Other)
  Sender: FDA-Public Use
  Company Number: US-GILEAD-2024-0672004

PATIENT
  Age: 0 Year
  Sex: Female

DRUGS (2)
  1. EMTRICITABINE\TENOFOVIR [Suspect]
     Active Substance: EMTRICITABINE\TENOFOVIR
     Indication: HIV infection
     Dosage: 1 DOSAGE FORM, QD
     Route: 064
  2. TIVICAY [Suspect]
     Active Substance: DOLUTEGRAVIR SODIUM
     Indication: HIV infection
     Dosage: 1 DOSAGE FORM, QD
     Route: 064

REACTIONS (9)
  - Lacrimo-auriculo-dento-digital syndrome [Fatal]
  - Ventricular septal defect [Unknown]
  - Gastrointestinal malformation [Unknown]
  - Oesophageal fistula [Unknown]
  - Hydrops foetalis [Unknown]
  - Tracheo-oesophageal fistula [Unknown]
  - Cardiomegaly [Unknown]
  - Ventricular enlargement [Unknown]
  - Foetal exposure during pregnancy [Recovered/Resolved]

NARRATIVE: CASE EVENT DATE: 20240424
